FAERS Safety Report 20884905 (Version 1)
Quarter: 2022Q2

REPORT INFORMATION
  Report Type: Spontaneous
  Country: US (occurrence: US)
  Receive Date: 20220527
  Receipt Date: 20220527
  Transmission Date: 20220720
  Serious: No
  Sender: FDA-Public Use
  Company Number: US-ESPERIONTHERAPEUTICS-2022USA00435

PATIENT
  Age: 67 Year
  Sex: Male

DRUGS (3)
  1. NEXLETOL [Suspect]
     Active Substance: BEMPEDOIC ACID
     Indication: Product used for unknown indication
     Dosage: UNK, QD
     Route: 048
     Dates: start: 2021, end: 202110
  2. NEXLETOL [Suspect]
     Active Substance: BEMPEDOIC ACID
     Dosage: UNK, QOD
     Route: 048
     Dates: start: 202201
  3. ZETIA [Suspect]
     Active Substance: EZETIMIBE
     Indication: Product used for unknown indication
     Dosage: UNK, QD
     Route: 048
     Dates: start: 2021

REACTIONS (4)
  - Off label use [Not Recovered/Not Resolved]
  - Muscle spasms [Recovered/Resolved]
  - Diarrhoea [Unknown]
  - Gout [Unknown]

NARRATIVE: CASE EVENT DATE: 20210101
